FAERS Safety Report 13923002 (Version 1)
Quarter: 2017Q3

REPORT INFORMATION
  Report Type: Spontaneous
  Country: RO (occurrence: RO)
  Receive Date: 20170830
  Receipt Date: 20170830
  Transmission Date: 20171127
  Serious: Yes (Other)
  Sender: FDA-Public Use
  Company Number: RO-BAXTER-2017BAX030681

PATIENT
  Age: 48 Year
  Sex: Female

DRUGS (21)
  1. TOREMIFENE [Suspect]
     Active Substance: TOREMIFENE
     Indication: ADVERSE EVENT
     Dosage: SEQUENTIAL TREATMENT
     Route: 065
     Dates: start: 201412, end: 201506
  2. ENDOXAN 200 MG PULBERE PENTRU SOLUTIE PERFUZABILA/INJECTABILA [Suspect]
     Active Substance: CYCLOPHOSPHAMIDE
     Route: 065
     Dates: start: 201703, end: 201707
  3. CAPECITABINE. [Suspect]
     Active Substance: CAPECITABINE
     Indication: ADVERSE EVENT
     Dosage: SEQUENTIAL TREATMENT
     Route: 065
     Dates: start: 201402, end: 201411
  4. PACLITAXEL. [Suspect]
     Active Substance: PACLITAXEL
     Indication: ADVERSE EVENT
     Dosage: SEQUENTIAL TREATMENT
     Route: 065
     Dates: start: 201511, end: 201605
  5. ANASTROZOLUM [Suspect]
     Active Substance: ANASTROZOLE
     Indication: BREAST CANCER
     Route: 065
     Dates: end: 201103
  6. EXEMESTANE. [Suspect]
     Active Substance: EXEMESTANE
     Indication: ADVERSE EVENT
     Dosage: SEQUENTIAL TREATMENT
     Route: 065
     Dates: start: 201606, end: 201609
  7. ENDOXAN 200 MG PULBERE PENTRU SOLUTIE PERFUZABILA/INJECTABILA [Suspect]
     Active Substance: CYCLOPHOSPHAMIDE
     Dosage: CT CHEMOTHERAPY
     Route: 065
  8. ZOLEDRONIC ACID. [Suspect]
     Active Substance: ZOLEDRONIC ACID
     Indication: ADVERSE EVENT
     Route: 065
     Dates: start: 2012
  9. TAXOTERE [Suspect]
     Active Substance: DOCETAXEL
     Indication: BREAST CANCER
     Dosage: ADJUVANT ET CHEMOTHERAPY
     Route: 065
  10. METHOTREXATE. [Suspect]
     Active Substance: METHOTREXATE
     Indication: BREAST CANCER
     Dosage: TOTAL FOUR COURSES OF CMF THERAPY
     Route: 065
     Dates: start: 200512, end: 200603
  11. 5 FLUOROURACIL [Suspect]
     Active Substance: FLUOROURACIL
     Indication: BREAST CANCER
     Dosage: TOTAL FOUR COURSES OF CMF THERAPY
     Route: 065
     Dates: start: 200512, end: 200603
  12. TAMOXIFENE [Suspect]
     Active Substance: TAMOXIFEN
     Indication: BREAST CANCER
     Route: 065
  13. FULVESTRANT. [Suspect]
     Active Substance: FULVESTRANT
     Indication: ADVERSE EVENT
     Dosage: SEQUENTIAL TREATMENT
     Route: 065
     Dates: start: 201210, end: 201401
  14. MYOCET [Suspect]
     Active Substance: DOXORUBICIN
     Indication: BREAST CANCER METASTATIC
     Route: 065
     Dates: start: 201703, end: 201707
  15. ENDOXAN 200 MG PULBERE PENTRU SOLUTIE PERFUZABILA/INJECTABILA [Suspect]
     Active Substance: CYCLOPHOSPHAMIDE
     Indication: BREAST CANCER
     Dosage: TOTAL SIX COURSES OF AC THERAPY
     Route: 065
     Dates: start: 200507, end: 200511
  16. DOXORUBICIN [Suspect]
     Active Substance: DOXORUBICIN
     Indication: BREAST CANCER
     Dosage: TOTAL SIX COURSES OF AC THERAPY
     Route: 065
     Dates: start: 200507, end: 200511
  17. CAELYX [Suspect]
     Active Substance: DOXORUBICIN HYDROCHLORIDE
     Indication: BREAST CANCER METASTATIC
     Dosage: TOTAL THREE COURSES
     Route: 065
     Dates: start: 201612, end: 201702
  18. ENDOXAN 200 MG PULBERE PENTRU SOLUTIE PERFUZABILA/INJECTABILA [Suspect]
     Active Substance: CYCLOPHOSPHAMIDE
     Indication: BREAST CANCER METASTATIC
     Dosage: TOTAL FOUR COURSES OF CMF THERAPY
     Route: 065
     Dates: start: 200512, end: 200603
  19. EPIRUBICIN [Suspect]
     Active Substance: EPIRUBICIN
     Indication: BREAST CANCER
     Dosage: ADJUVANT ET CHEMOTHERAPY
     Route: 065
  20. TAXOTERE [Suspect]
     Active Substance: DOCETAXEL
     Dosage: CT THERAPY
     Route: 065
  21. NAVELBINE [Suspect]
     Active Substance: VINORELBINE TARTRATE
     Indication: ADVERSE EVENT
     Dosage: SEQUENTIAL TREATMENT
     Route: 065
     Dates: start: 201506, end: 201511

REACTIONS (13)
  - Metastases to spine [Unknown]
  - Metastases to bone [Unknown]
  - Pulmonary mass [Unknown]
  - Metastases to soft tissue [Unknown]
  - Neurotoxicity [Unknown]
  - Metastases to liver [Recovering/Resolving]
  - Therapy non-responder [None]
  - Breast cancer metastatic [Recovered/Resolved]
  - Drug resistance [Unknown]
  - Palmar-plantar erythrodysaesthesia syndrome [Unknown]
  - Breast cancer recurrent [Unknown]
  - Vertebral artery occlusion [Unknown]
  - Ascites [Recovering/Resolving]

NARRATIVE: CASE EVENT DATE: 201210
